FAERS Safety Report 5704365-X (Version None)
Quarter: 2008Q2

REPORT INFORMATION
  Report Type: 
  Country: None (occurrence: None)
  Receive Date: 20080414
  Receipt Date: 20080403
  Transmission Date: 20081010
  Serious: Yes (Death)
  Sender: FDA-Public Use
  Company Number: A0699227A

PATIENT
  Age: 17 Year
  Sex: Male

DRUGS (2)
  1. ADVAIR HFA [Suspect]
     Indication: ASTHMA
     Route: 055
     Dates: end: 20030517
  2. SEREVENT [Suspect]
     Indication: ASTHMA
     Route: 065
     Dates: end: 20030517

REACTIONS (4)
  - ANOXIC ENCEPHALOPATHY [None]
  - CARDIO-RESPIRATORY ARREST [None]
  - LUNG HYPERINFLATION [None]
  - RESPIRATORY ARREST [None]
